FAERS Safety Report 12187847 (Version 1)
Quarter: 2016Q1

REPORT INFORMATION
  Report Type: Spontaneous
  Country: US (occurrence: None)
  Receive Date: 20160316
  Receipt Date: 20160316
  Transmission Date: 20160526
  Serious: Yes (Other)
  Sender: FDA-Public Use
  Company Number: None

PATIENT
  Age: 36 Year
  Sex: Male
  Weight: 109.77 kg

DRUGS (5)
  1. LITHIUM. [Concomitant]
     Active Substance: LITHIUM
  2. LAMOTRIGINE 200MG CIPLA [Suspect]
     Active Substance: LAMOTRIGINE
     Indication: THERAPY CHANGE
     Dosage: 1 TABLET DAILY QD ORAL
     Route: 048
     Dates: start: 20151105, end: 20151128
  3. PROPRANOLOL [Concomitant]
     Active Substance: PROPRANOLOL\PROPRANOLOL HYDROCHLORIDE
  4. SYNTHROID [Concomitant]
     Active Substance: LEVOTHYROXINE SODIUM
  5. OMEPRAZOLE. [Concomitant]
     Active Substance: OMEPRAZOLE

REACTIONS (2)
  - Depression [None]
  - Irritability [None]

NARRATIVE: CASE EVENT DATE: 20151105
